FAERS Safety Report 14297483 (Version 1)
Quarter: 2017Q4

REPORT INFORMATION
  Report Type: Spontaneous
  Country: US (occurrence: US)
  Receive Date: 20171218
  Receipt Date: 20171218
  Transmission Date: 20180321
  Serious: Yes (Other)
  Sender: FDA-Public Use
  Company Number: US-TEVA-2017-US-832210

PATIENT
  Sex: Male

DRUGS (1)
  1. LABETALOL [Suspect]
     Active Substance: LABETALOL\LABETALOL HYDROCHLORIDE
     Indication: HYPERTENSION
     Dates: start: 20171124

REACTIONS (9)
  - Drug ineffective [Unknown]
  - Blood pressure increased [Recovered/Resolved]
  - Dyspnoea [Unknown]
  - Feeling abnormal [Unknown]
  - Abdominal discomfort [Unknown]
  - Fatigue [Unknown]
  - Malaise [Unknown]
  - Muscular weakness [Unknown]
  - Head discomfort [Unknown]

NARRATIVE: CASE EVENT DATE: 20171124
